FAERS Safety Report 10455842 (Version 1)
Quarter: 2014Q3

REPORT INFORMATION
  Report Type: Spontaneous
  Country: US (occurrence: None)
  Receive Date: 20140910
  Receipt Date: 20140910
  Transmission Date: 20150326
  Serious: Yes (Other)
  Sender: FDA-Public Use
  Company Number: 108618T

PATIENT
  Sex: Female

DRUGS (1)
  1. ROHTO RELIEF [Suspect]
     Active Substance: HYPROMELLOSES\TETRAHYDROZOLINE HYDROCHLORIDE\ZINC SULFATE
     Dates: start: 20140808

REACTIONS (2)
  - Erythema [None]
  - Eye irritation [None]
